FAERS Safety Report 15730879 (Version 4)
Quarter: 2019Q1

REPORT INFORMATION
  Report Type: Spontaneous
  Country: JP (occurrence: JP)
  Receive Date: 20181217
  Receipt Date: 20190322
  Transmission Date: 20190417
  Serious: Yes (Life-Threatening)
  Sender: FDA-Public Use
  Company Number: JP-PFIZER INC-2018514494

PATIENT
  Sex: Female

DRUGS (16)
  1. METHYLPREDNISOLONE SODIUM SUCCINATE. [Suspect]
     Active Substance: METHYLPREDNISOLONE SODIUM SUCCINATE
     Indication: CHRONIC GRAFT VERSUS HOST DISEASE
  2. METHOTREXATE. [Concomitant]
     Active Substance: METHOTREXATE
     Indication: CHRONIC GRAFT VERSUS HOST DISEASE
  3. DEXAMETHASONE. [Suspect]
     Active Substance: DEXAMETHASONE
     Indication: BLASTIC PLASMACYTOID DENDRITIC CELL NEOPLASIA
     Dosage: 485 MG/M2, UNK9HIGH-DOSE GLUCOCORTICOID)
  4. METHYLPREDNISOLONE SODIUM SUCCINATE. [Suspect]
     Active Substance: METHYLPREDNISOLONE SODIUM SUCCINATE
     Indication: BLASTIC PLASMACYTOID DENDRITIC CELL NEOPLASIA
     Dosage: 414 MG/M2, UNK (HIGH-DOSE GLUCOCORTICOID)
  5. MELPHALAN. [Concomitant]
     Active Substance: MELPHALAN
     Indication: BLASTIC PLASMACYTOID DENDRITIC CELL NEOPLASIA
     Dosage: UNK, CYCLIC
  6. PREDNISONE. [Suspect]
     Active Substance: PREDNISONE
     Indication: BLASTIC PLASMACYTOID DENDRITIC CELL NEOPLASIA
     Dosage: 2373 MG/M2, UNK
  7. PREDNISONE. [Suspect]
     Active Substance: PREDNISONE
     Indication: CHRONIC GRAFT VERSUS HOST DISEASE
  8. METHOTREXATE. [Concomitant]
     Active Substance: METHOTREXATE
     Indication: PROPHYLAXIS
  9. CYTARABINE. [Concomitant]
     Active Substance: CYTARABINE
     Indication: BLASTIC PLASMACYTOID DENDRITIC CELL NEOPLASIA
     Dosage: UNK, CYCLIC (TRIPLE INTRATHECAL THERAPY (TIT)X 6)
     Route: 037
  10. BUSULFAN. [Concomitant]
     Active Substance: BUSULFAN
     Indication: BLASTIC PLASMACYTOID DENDRITIC CELL NEOPLASIA
     Dosage: UNK , CYCLIC
  11. ETOPOSIDE. [Concomitant]
     Active Substance: ETOPOSIDE
     Indication: BLASTIC PLASMACYTOID DENDRITIC CELL NEOPLASIA
     Dosage: UNK, CYCLIC
  12. DEXAMETHASONE. [Suspect]
     Active Substance: DEXAMETHASONE
     Indication: CHRONIC GRAFT VERSUS HOST DISEASE
  13. CYCLOPHOSPHAMIDE. [Concomitant]
     Active Substance: CYCLOPHOSPHAMIDE
     Indication: BLASTIC PLASMACYTOID DENDRITIC CELL NEOPLASIA
     Dosage: UNK, CYCLIC
  14. FLUDARABINE [Concomitant]
     Active Substance: FLUDARABINE PHOSPHATE
     Indication: BLASTIC PLASMACYTOID DENDRITIC CELL NEOPLASIA
     Dosage: UNK, CYCLIC
  15. METHOTREXATE. [Concomitant]
     Active Substance: METHOTREXATE
     Indication: BLASTIC PLASMACYTOID DENDRITIC CELL NEOPLASIA
     Dosage: UNK, CYCLIC (FOUR INTRATHECAL METHOTREXATE (MTX) INFUSIONS, TRIPLE INTRATHECAL THERAPY (TIT)X 6)
     Route: 037
  16. CYTARABINE. [Concomitant]
     Active Substance: CYTARABINE
     Indication: PROPHYLAXIS

REACTIONS (1)
  - Adrenal insufficiency [Recovering/Resolving]
